FAERS Safety Report 5078706-3 (Version None)
Quarter: 2006Q3

REPORT INFORMATION
  Report Type: 
  Country: None (occurrence: None)
  Receive Date: 20060808
  Receipt Date: 20060721
  Transmission Date: 20061208
  Serious: No
  Sender: FDA-Public Use
  Company Number: TPA2006A01176

PATIENT
  Age: 64 Year
  Sex: Female

DRUGS (1)
  1. ROZEREM [Suspect]
     Dosage: 1/3 TABLET, QHS, PER ORAL
     Route: 048

REACTIONS (5)
  - FEELING ABNORMAL [None]
  - HYPOAESTHESIA FACIAL [None]
  - LETHARGY [None]
  - SEDATION [None]
  - SOMNOLENCE [None]
